FAERS Safety Report 15767674 (Version 1)
Quarter: 2018Q4

REPORT INFORMATION
  Report Type: Spontaneous
  Country: CN (occurrence: CN)
  Receive Date: 20181227
  Receipt Date: 20181227
  Transmission Date: 20190205
  Serious: Yes (Hospitalization, Other)
  Sender: FDA-Public Use
  Company Number: CN-GLAXOSMITHKLINE-CN2018GSK229890

PATIENT
  Age: 74 Year
  Sex: Female

DRUGS (8)
  1. CILASTATIN SODIUM [Concomitant]
     Active Substance: CILASTATIN SODIUM
     Indication: INFECTION
  2. THYMOSIN ALPHA 1 [Concomitant]
     Indication: IMMUNOLOGY TEST
  3. AMINO ACID [Concomitant]
     Active Substance: AMINO ACIDS
     Indication: PRODUCT USED FOR UNKNOWN INDICATION
  4. IMIPENEM [Concomitant]
     Active Substance: IMIPENEM
     Indication: INFECTION
  5. OMEPRAZOLE. [Concomitant]
     Active Substance: OMEPRAZOLE
     Indication: ABDOMINAL DISCOMFORT
  6. SALBUTAMOL SULPHATE [Suspect]
     Active Substance: ALBUTEROL SULFATE
     Indication: PRODUCT USED FOR UNKNOWN INDICATION
     Dosage: 5 MG
     Dates: start: 20180523
  7. DOXOFYLLINE [Concomitant]
     Active Substance: DOXOFYLLINE
     Indication: ASTHMA
  8. AMBROXOL HYDROCHLORIDE [Concomitant]
     Active Substance: AMBROXOL HYDROCHLORIDE
     Indication: PRODUCTIVE COUGH

REACTIONS (3)
  - Hypersensitivity [Recovered/Resolved]
  - Lethargy [Recovered/Resolved]
  - Shock [Recovered/Resolved]
